FAERS Safety Report 24916743 (Version 1)
Quarter: 2025Q1

REPORT INFORMATION
  Report Type: Spontaneous
  Country: IT (occurrence: IT)
  Receive Date: 20250203
  Receipt Date: 20250203
  Transmission Date: 20250408
  Serious: Yes (Other)
  Sender: NOVARTIS
  Company Number: IT-FIDIA-20240806

PATIENT
  Age: 72 Year
  Sex: Female

DRUGS (8)
  1. PERINDOPRIL [Suspect]
     Active Substance: PERINDOPRIL
     Indication: Product used for unknown indication
     Route: 065
  2. AMLODIPINE BESYLATE [Suspect]
     Active Substance: AMLODIPINE BESYLATE
     Indication: Product used for unknown indication
     Route: 065
  3. AZARGA [Suspect]
     Active Substance: BRINZOLAMIDE\TIMOLOL MALEATE
     Indication: Product used for unknown indication
     Route: 065
  4. IZBA [Suspect]
     Active Substance: TRAVOPROST
     Indication: Product used for unknown indication
     Route: 065
  5. BRIMONIDINE TARTRATE [Suspect]
     Active Substance: BRIMONIDINE TARTRATE
     Indication: Glaucoma
     Route: 065
     Dates: start: 202404, end: 202404
  6. BRIMONIDINE TARTRATE [Suspect]
     Active Substance: BRIMONIDINE TARTRATE
     Indication: Conjunctivitis
     Route: 065
     Dates: start: 202404, end: 20241214
  7. BRINZOLAMIDE\TIMOLOL MALEATE [Suspect]
     Active Substance: BRINZOLAMIDE\TIMOLOL MALEATE
     Indication: Product used for unknown indication
     Route: 065
  8. Myrialen [Concomitant]
     Indication: Product used for unknown indication
     Route: 065

REACTIONS (6)
  - Ocular hyperaemia [Unknown]
  - Eye pruritus [Unknown]
  - Lacrimation increased [Unknown]
  - Drug hypersensitivity [Unknown]
  - Blood pressure decreased [Not Recovered/Not Resolved]
  - Hypotension [Unknown]

NARRATIVE: CASE EVENT DATE: 20240401
